FAERS Safety Report 22219692 (Version 1)
Quarter: 2023Q2

REPORT INFORMATION
  Report Type: Spontaneous
  Country: US (occurrence: None)
  Receive Date: 20230417
  Receipt Date: 20230417
  Transmission Date: 20230722
  Serious: Yes (Life-Threatening, Disabling, Other)
  Sender: FDA-Public Use
  Company Number: 2023A087869

PATIENT

DRUGS (1)
  1. FASENRA [Suspect]
     Active Substance: BENRALIZUMAB
     Route: 058

REACTIONS (6)
  - Terminal state [Not Recovered/Not Resolved]
  - Organ failure [Not Recovered/Not Resolved]
  - Sinusitis [Recovered/Resolved with Sequelae]
  - Upper respiratory tract infection [Recovered/Resolved with Sequelae]
  - Immune system disorder [Unknown]
  - Illness [Not Recovered/Not Resolved]
